FAERS Safety Report 7271858-6 (Version None)
Quarter: 2011Q1

REPORT INFORMATION
  Report Type: 
  Country: None (occurrence: None)
  Receive Date: 20110131
  Receipt Date: 20110131
  Transmission Date: 20110831
  Serious: No
  Sender: FDA-Public Use
  Company Number: None

PATIENT
  Age: 86 Year
  Sex: Female
  Weight: 67.1324 kg

DRUGS (1)
  1. DARVOCET-N 100 [Suspect]

REACTIONS (5)
  - DIZZINESS [None]
  - CONDITION AGGRAVATED [None]
  - BACK PAIN [None]
  - PAIN [None]
  - DOCUMENTED HYPERSENSITIVITY TO ADMINISTERED DRUG [None]
